FAERS Safety Report 8190295 (Version 2)
Quarter: 2012Q4

REPORT INFORMATION
  Report Type: Report from Study
  Country: FR (occurrence: FR)
  Receive Date: 20111019
  Receipt Date: 20121022
  Transmission Date: 20130627
  Serious: Yes (Hospitalization)
  Sender: FDA-Public Use
  Company Number: FR-ROCHE-1004956

PATIENT
  Sex: Male

DRUGS (3)
  1. RITUXIMAB [Suspect]
     Indication: B-CELL LYMPHOMA
     Dosage: FIRST LINE OF TREATMENT
     Route: 042
  2. GLOBULIN, IMMUNE [Concomitant]
  3. GLOBULIN, IMMUNE [Concomitant]

REACTIONS (2)
  - Lung disorder [Unknown]
  - Cough [Unknown]
